FAERS Safety Report 15310169 (Version 2)
Quarter: 2018Q3

REPORT INFORMATION
  Report Type: Spontaneous
  Country: US (occurrence: US)
  Receive Date: 20180823
  Receipt Date: 20180911
  Transmission Date: 20181010
  Serious: No
  Sender: FDA-Public Use
  Company Number: US-PFIZER INC-2018339960

PATIENT
  Age: 81 Year
  Sex: Female
  Weight: 67 kg

DRUGS (2)
  1. ADVIL [Suspect]
     Active Substance: IBUPROFEN
     Indication: ARTHRALGIA
     Dosage: UNK
  2. ADVIL [Suspect]
     Active Substance: IBUPROFEN

REACTIONS (2)
  - Drug ineffective [Not Recovered/Not Resolved]
  - Product selection error [Unknown]
